FAERS Safety Report 19395384 (Version 1)
Quarter: 2021Q2

REPORT INFORMATION
  Report Type: Spontaneous
  Country: US (occurrence: US)
  Receive Date: 20210609
  Receipt Date: 20210609
  Transmission Date: 20210717
  Serious: No
  Sender: FDA-Public Use
  Company Number: US-ELI_LILLY_AND_COMPANY-US202105004252

PATIENT
  Sex: Female

DRUGS (1)
  1. TRULICITY [Suspect]
     Active Substance: DULAGLUTIDE
     Indication: PRODUCT USED FOR UNKNOWN INDICATION
     Dosage: 1.5 MG, UNKNOWN
     Route: 065
     Dates: start: 20210205

REACTIONS (8)
  - Chills [Unknown]
  - Sleep disorder due to a general medical condition [Unknown]
  - Nausea [Unknown]
  - Paraesthesia [Unknown]
  - Pain in extremity [Unknown]
  - Feeding disorder [Unknown]
  - Hypoaesthesia [Unknown]
  - Vomiting [Unknown]
